FAERS Safety Report 26165017 (Version 1)
Quarter: 2025Q4

REPORT INFORMATION
  Report Type: Spontaneous
  Country: KR (occurrence: KR)
  Receive Date: 20251216
  Receipt Date: 20251216
  Transmission Date: 20260118
  Serious: Yes (Other)
  Sender: Kenvue
  Company Number: KR-KENVUE-20251203834

PATIENT
  Age: 3 Decade

DRUGS (1)
  1. TYLENOL 8HR [Suspect]
     Active Substance: ACETAMINOPHEN
     Indication: Nasopharyngitis
     Dosage: 650 MILLIGRAM, ONCE A DAY (/1DAY)
     Route: 061

REACTIONS (3)
  - Dyspnoea [Recovered/Resolved]
  - Pruritus [Recovered/Resolved]
  - Urticaria [Recovered/Resolved]
